FAERS Safety Report 7851779-8 (Version None)
Quarter: 2011Q3

REPORT INFORMATION
  Report Type: 
  Country: None (occurrence: None)
  Receive Date: 20110912
  Receipt Date: 20110516
  Transmission Date: 20111222
  Serious: No
  Sender: FDA-Public Use
  Company Number: TH-2011-00141

PATIENT
  Age: 45 Year
  Sex: Male

DRUGS (1)
  1. EGRIFTA [Suspect]
     Indication: LIPODYSTROPHY ACQUIRED
     Dosage: 1 IN 1 D
     Dates: start: 20110509, end: 20110514

REACTIONS (6)
  - VOMITING [None]
  - HYPERAESTHESIA [None]
  - HYPOGLYCAEMIA [None]
  - NAUSEA [None]
  - TENDERNESS [None]
  - ABDOMINAL TENDERNESS [None]
